FAERS Safety Report 12694432 (Version 15)
Quarter: 2017Q2

REPORT INFORMATION
  Report Type: Spontaneous
  Country: US (occurrence: US)
  Receive Date: 20160829
  Receipt Date: 20170619
  Transmission Date: 20170830
  Serious: Yes (Hospitalization)
  Sender: FDA-Public Use
  Company Number: US-ACTELION-A-US2016-141086

PATIENT
  Age: 57 Year
  Sex: Female
  Weight: 58.96 kg

DRUGS (16)
  1. ADEMPAS [Suspect]
     Active Substance: RIOCIGUAT
     Indication: PRODUCT USED FOR UNKNOWN INDICATION
     Dosage: 1 MG, TID
     Route: 065
  2. TRAZODONE [Concomitant]
     Active Substance: TRAZODONE HYDROCHLORIDE
  3. OPSUMIT [Suspect]
     Active Substance: MACITENTAN
     Indication: PULMONARY HYPERTENSION
     Dosage: 10 MG, QD
     Route: 048
     Dates: start: 20150211
  4. VELETRI [Suspect]
     Active Substance: EPOPROSTENOL
     Indication: PULMONARY HYPERTENSION
     Dosage: 15 NG/KG, PER MIN
     Route: 042
     Dates: start: 20160225
  5. METOPROLOL. [Concomitant]
     Active Substance: METOPROLOL
  6. PANTOPRAZOLE [Concomitant]
     Active Substance: PANTOPRAZOLE
  7. METOLAZONE. [Concomitant]
     Active Substance: METOLAZONE
  8. ONDANSETRON [Concomitant]
     Active Substance: ONDANSETRON
  9. VELETRI [Suspect]
     Active Substance: EPOPROSTENOL
     Dosage: 17 NG/KG, PER MIN
     Route: 042
  10. FUROSEMIDE. [Concomitant]
     Active Substance: FUROSEMIDE
  11. SPIRONOLACTONE. [Concomitant]
     Active Substance: SPIRONOLACTONE
  12. URSODIOL. [Concomitant]
     Active Substance: URSODIOL
  13. VELETRI [Suspect]
     Active Substance: EPOPROSTENOL
     Dosage: 5 NG/KG, PER MIN
     Route: 042
     Dates: start: 201611
  14. VELETRI [Suspect]
     Active Substance: EPOPROSTENOL
     Dosage: 6 NG/KG, PER MIN
     Route: 042
  15. ADCIRCA [Concomitant]
     Active Substance: TADALAFIL
  16. POTASSIUM [Concomitant]
     Active Substance: POTASSIUM

REACTIONS (33)
  - Condition aggravated [Not Recovered/Not Resolved]
  - Portopulmonary hypertension [Not Recovered/Not Resolved]
  - Cardiac failure high output [Recovering/Resolving]
  - Prescribed overdose [Recovering/Resolving]
  - Haemoglobin decreased [Unknown]
  - Pleural effusion [Recovered/Resolved]
  - Alanine aminotransferase increased [Not Recovered/Not Resolved]
  - Agitation [Recovering/Resolving]
  - Fatigue [Unknown]
  - Confusional state [Recovering/Resolving]
  - Nausea [Not Recovered/Not Resolved]
  - Pneumothorax [Recovering/Resolving]
  - Laboratory test abnormal [Unknown]
  - Purulent discharge [Unknown]
  - Pneumonia [Unknown]
  - Left ventricular hypertrophy [Unknown]
  - Liver function test increased [Not Recovered/Not Resolved]
  - Hepatic cirrhosis [Not Recovered/Not Resolved]
  - Mental status changes [Not Recovered/Not Resolved]
  - Lethargy [Recovering/Resolving]
  - Pneumothorax spontaneous [Unknown]
  - Dyspnoea [Recovering/Resolving]
  - Aspartate aminotransferase increased [Not Recovered/Not Resolved]
  - Diarrhoea [Not Recovered/Not Resolved]
  - Blood alkaline phosphatase increased [Not Recovered/Not Resolved]
  - Hepatic encephalopathy [Recovering/Resolving]
  - Blood bilirubin increased [Not Recovered/Not Resolved]
  - Fluid overload [Unknown]
  - Pulmonary arterial hypertension [Not Recovered/Not Resolved]
  - Headache [Unknown]
  - Disease complication [Unknown]
  - Aspiration [Unknown]
  - Anaemia [Unknown]

NARRATIVE: CASE EVENT DATE: 20160801
